FAERS Safety Report 23175773 (Version 1)
Quarter: 2023Q4

REPORT INFORMATION
  Report Type: Spontaneous
  Country: None (occurrence: CN)
  Receive Date: 20231113
  Receipt Date: 20231113
  Transmission Date: 20240110
  Serious: Yes (Other)
  Sender: FDA-Public Use
  Company Number: CN-Jiangsu Hengrui Medicine Co., Ltd.-2148194

PATIENT
  Age: 63 Year
  Sex: Female
  Weight: 45 kg

DRUGS (3)
  1. DOCETAXEL [Suspect]
     Active Substance: DOCETAXEL\DOCETAXEL ANHYDROUS
     Indication: Breast cancer
     Route: 041
     Dates: start: 20230922, end: 20230922
  2. PERTUZUMAB [Suspect]
     Active Substance: PERTUZUMAB
     Route: 041
     Dates: start: 20230922, end: 20231022
  3. TRASTUZUMAB [Suspect]
     Active Substance: TRASTUZUMAB
     Route: 041
     Dates: start: 20230922, end: 20230922

REACTIONS (2)
  - Muscular weakness [Recovering/Resolving]
  - Gait disturbance [Recovering/Resolving]

NARRATIVE: CASE EVENT DATE: 20230925
